FAERS Safety Report 9097968 (Version 3)
Quarter: 2013Q2

REPORT INFORMATION
  Report Type: Spontaneous
  Country: US (occurrence: US)
  Receive Date: 20130212
  Receipt Date: 20130506
  Transmission Date: 20140414
  Serious: No
  Sender: FDA-Public Use
  Company Number: US-PFIZER INC-2013051921

PATIENT
  Sex: Male

DRUGS (3)
  1. ZITHROMAX [Suspect]
     Indication: UPPER RESPIRATORY TRACT INFECTION
     Dosage: 250 MG, 2X/DAY
     Route: 048
  2. IBUPROFEN [Concomitant]
     Dosage: UNK, AS NEEDED
  3. TYLENOL [Concomitant]
     Dosage: UNK, AS NEEDED

REACTIONS (1)
  - Cranial nerve disorder [Unknown]
